FAERS Safety Report 4386223-9 (Version None)
Quarter: 2004Q2

REPORT INFORMATION
  Report Type: 
  Country: None (occurrence: None)
  Receive Date: 20040623
  Receipt Date: 20040614
  Transmission Date: 20050107
  Serious: Yes (Other)
  Sender: FDA-Public Use
  Company Number: 2004-05-0639

PATIENT
  Age: 58 Year
  Sex: Male
  Weight: 63 kg

DRUGS (3)
  1. REBETOL [Suspect]
     Indication: CHRONIC HEPATITIS
     Dosage: 800 MG ORAL
     Route: 048
     Dates: start: 20040507, end: 20040511
  2. INTRON A [Suspect]
     Indication: CHRONIC HEPATITIS
     Dosage: 6 MU INTRAMUSCULAR
     Route: 030
     Dates: start: 20040507, end: 20040511
  3. ANTIHYPERTENSIVE AGENT (NOS) [Concomitant]

REACTIONS (4)
  - BLOOD PRESSURE SYSTOLIC DECREASED [None]
  - CONVULSION [None]
  - LOSS OF CONSCIOUSNESS [None]
  - SHOCK [None]
